FAERS Safety Report 7076618-7 (Version None)
Quarter: 2010Q4

REPORT INFORMATION
  Report Type: 
  Country: None (occurrence: None)
  Receive Date: 20101101
  Receipt Date: 20101028
  Transmission Date: 20110411
  Serious: Yes (Life-Threatening, Other)
  Sender: FDA-Public Use
  Company Number: GB-ASTRAZENECA-2010SE51212

PATIENT
  Age: 79 Year
  Sex: Male

DRUGS (11)
  1. MEROPENEM [Suspect]
     Indication: SEPSIS
     Route: 042
     Dates: start: 20101005, end: 20101007
  2. AMITRIPTYLINE HCL [Concomitant]
     Route: 048
  3. CANDESARTAN CILEXETIL [Concomitant]
     Route: 048
  4. CEFUROXIME [Concomitant]
     Route: 042
  5. HYDROXYZINE [Concomitant]
     Route: 048
  6. METFORMIN [Concomitant]
     Route: 048
  7. METRONIDAZOLE [Concomitant]
     Route: 042
  8. PANTOPRAZOLE [Concomitant]
  9. PARACETAMOL [Concomitant]
  10. SIMVASTATIN [Concomitant]
     Route: 048
  11. TINZAPARIN [Concomitant]
     Dosage: 4500 CI, DAILY

REACTIONS (1)
  - LIVER FUNCTION TEST ABNORMAL [None]
